FAERS Safety Report 7584639-0 (Version None)
Quarter: 2011Q2

REPORT INFORMATION
  Report Type: 
  Country: None (occurrence: None)
  Receive Date: 20110630
  Receipt Date: 20110621
  Transmission Date: 20111010
  Serious: Yes (Other)
  Sender: FDA-Public Use
  Company Number: US-ABBOTT-11P-163-0734017-00

PATIENT
  Age: 41 Year
  Sex: Female
  Weight: 124.12 kg

DRUGS (16)
  1. MULTIVITAMIN ^LAPPE^ [Concomitant]
     Indication: PROPHYLAXIS
     Dates: start: 20080131
  2. IMODIUM JASSEN [Concomitant]
     Indication: DIARRHOEA
  3. CORICIDIN [Concomitant]
     Indication: HYPERSENSITIVITY
     Dates: start: 20101107
  4. TRILIPIX [Suspect]
     Dates: start: 20110525
  5. LIPITOR [Suspect]
     Indication: HYPERTRIGLYCERIDAEMIA
     Dosage: DAILY AT BEDTIME
     Dates: start: 20100318, end: 20110421
  6. GLUCOVANCE [Concomitant]
     Indication: DIABETES MELLITUS
     Dates: start: 20051003
  7. NERATINIB; PLACEBO (BLINDED) [Suspect]
     Indication: BREAST CANCER
     Dates: start: 20100217, end: 20110212
  8. MAGNESIUM [Concomitant]
     Indication: BLOOD MAGNESIUM DECREASED
     Dates: start: 20070412
  9. VITAMIN B COMPLEX CAP [Concomitant]
     Indication: PROPHYLAXIS
     Dates: start: 20110401
  10. TRILIPIX [Suspect]
     Indication: HYPERTRIGLYCERIDAEMIA
     Dosage: DAILY AT BEDTIME
     Dates: start: 20100318, end: 20100421
  11. VITAMIN D [Concomitant]
     Indication: PROPHYLAXIS
     Dates: start: 20100806
  12. FENOFIBRIC ACID [Concomitant]
     Indication: BREAST CANCER
     Dates: start: 20100217
  13. LANTUS [Concomitant]
     Indication: DIABETES MELLITUS
     Dates: start: 20100217
  14. CORICIDIN [Concomitant]
     Indication: UPPER RESPIRATORY TRACT INFECTION
  15. CALCIUM WITH VITAMIN D [Concomitant]
     Indication: PROPHYLAXIS
     Dates: start: 20080529
  16. ASPIRIN [Concomitant]
     Indication: PROPHYLAXIS
     Dates: start: 20100217

REACTIONS (3)
  - HYPERTRIGLYCERIDAEMIA [None]
  - TREATMENT NONCOMPLIANCE [None]
  - DRUG DOSE OMISSION [None]
